FAERS Safety Report 8909192 (Version 1)
Quarter: 2012Q4

REPORT INFORMATION
  Report Type: Spontaneous
  Country: US (occurrence: None)
  Receive Date: 20121113
  Receipt Date: 20121113
  Transmission Date: 20130627
  Serious: No
  Sender: FDA-Public Use
  Company Number: None

PATIENT
  Age: 59 Year
  Sex: Female

DRUGS (1)
  1. MACRODANTIN [Suspect]
     Indication: RECURRENT UTI
     Dates: start: 201009, end: 20110923

REACTIONS (9)
  - Drug-induced liver injury [None]
  - Interstitial lung disease [None]
  - Aspartate aminotransferase increased [None]
  - Alanine aminotransferase increased [None]
  - Blood alkaline phosphatase increased [None]
  - Blood bilirubin increased [None]
  - Haemangioma of liver [None]
  - Biopsy liver abnormal [None]
  - Hepatic steatosis [None]
